FAERS Safety Report 6758644-8 (Version None)
Quarter: 2010Q2

REPORT INFORMATION
  Report Type: 
  Country: None (occurrence: None)
  Receive Date: 20100607
  Receipt Date: 20100527
  Transmission Date: 20101027
  Serious: Yes (Other)
  Sender: FDA-Public Use
  Company Number: US-ROCHE-707376

PATIENT
  Sex: Male
  Weight: 71.7 kg

DRUGS (2)
  1. PEGASYS [Suspect]
     Indication: HEPATITIS C
     Dosage: FORM: INJECTION
     Route: 065
     Dates: start: 20100128
  2. COPEGUS [Suspect]
     Indication: HEPATITIS C
     Route: 048
     Dates: start: 20100128

REACTIONS (6)
  - BEDRIDDEN [None]
  - BLINDNESS UNILATERAL [None]
  - BONE PAIN [None]
  - COUGH [None]
  - PROCEDURAL COMPLICATION [None]
  - VASCULAR RUPTURE [None]
